FAERS Safety Report 6382611-X (Version None)
Quarter: 2009Q3

REPORT INFORMATION
  Report Type: 
  Country: None (occurrence: None)
  Receive Date: 20090928
  Receipt Date: 20090928
  Transmission Date: 20100115
  Serious: Yes (Hospitalization)
  Sender: FDA-Public Use
  Company Number: None

PATIENT
  Age: 70 Year
  Weight: 57.4 kg

DRUGS (2)
  1. OXALIPLATIN/CETUXIMAB [Suspect]
     Indication: GASTRIC CANCER
     Dosage: 130MG/M2 /250MG/M2 D1/ D1, 8, + 15 IV / IV
     Route: 042
     Dates: start: 20090415, end: 20090908
  2. CAPECITABINE [Suspect]
     Indication: GASTRIC CANCER
     Dosage: 850 MG/M2 BID X 14 DAY PO
     Route: 048
     Dates: start: 20090415, end: 20090908

REACTIONS (1)
  - CHOLECYSTITIS ACUTE [None]
